FAERS Safety Report 7495514-4 (Version None)
Quarter: 2011Q2

REPORT INFORMATION
  Report Type: 
  Country: None (occurrence: None)
  Receive Date: 20110523
  Receipt Date: 20110516
  Transmission Date: 20111010
  Serious: Yes (Other)
  Sender: FDA-Public Use
  Company Number: US-ASTRAZENECA-2009UW03129

PATIENT
  Age: 34 Year
  Sex: Male
  Weight: 113.4 kg

DRUGS (14)
  1. THORAZINE [Concomitant]
     Dates: start: 20030101, end: 20090101
  2. HALDOL [Concomitant]
     Dates: start: 20030101, end: 20090101
  3. RISPERDAL [Concomitant]
  4. ABILIFY [Concomitant]
     Dates: start: 20030101, end: 20090101
  5. SELEXA [Concomitant]
     Dosage: 50 MG/DAY
  6. ZOLOFT [Concomitant]
     Route: 048
     Dates: start: 20010328
  7. SEROQUEL [Suspect]
     Route: 048
     Dates: start: 20010328
  8. GEODON [Concomitant]
     Dates: start: 20030101, end: 20090101
  9. NAVANE [Concomitant]
     Dates: start: 20030101, end: 20090101
  10. SEROQUEL [Suspect]
     Dosage: 100 MG-200 MG
     Route: 048
     Dates: start: 20060818
  11. STELAZINE [Concomitant]
  12. NEURONTIN [Concomitant]
     Dosage: 800 MG TK 1 T PO QAM AND QHS
     Route: 048
     Dates: start: 20010328
  13. ZYPREXA/SYMBYAX [Concomitant]
     Dates: start: 20030101, end: 20090101
  14. SEROQUEL [Suspect]
     Indication: MENTAL DISORDER
     Route: 048
     Dates: start: 20000101, end: 20070101

REACTIONS (3)
  - TYPE 2 DIABETES MELLITUS [None]
  - ADVERSE DRUG REACTION [None]
  - PANCREATITIS [None]
